FAERS Safety Report 8006659-4 (Version None)
Quarter: 2011Q4

REPORT INFORMATION
  Report Type: 
  Country: None (occurrence: None)
  Receive Date: 20111227
  Receipt Date: 20111111
  Transmission Date: 20120403
  Serious: No
  Sender: FDA-Public Use
  Company Number: US-BAYER-2011-112179

PATIENT
  Sex: Female

DRUGS (1)
  1. AVELOX [Suspect]
     Dosage: UNK
     Route: 048
     Dates: start: 20110901, end: 20110101

REACTIONS (4)
  - EXERCISE TOLERANCE DECREASED [None]
  - FEELING HOT [None]
  - BLOOD TEST ABNORMAL [None]
  - MUSCLE SPASMS [None]
